FAERS Safety Report 5871167-3 (Version None)
Quarter: 2008Q3

REPORT INFORMATION
  Report Type: 
  Country: None (occurrence: None)
  Receive Date: 20080902
  Receipt Date: 20080818
  Transmission Date: 20090109
  Serious: Yes (Hospitalization)
  Sender: FDA-Public Use
  Company Number: FABR-1000321

PATIENT
  Age: 40 Year
  Sex: Female

DRUGS (1)
  1. FABRAZYME [Suspect]
     Indication: FABRY'S DISEASE
     Dosage: 1 MG/KG, Q2W; INTRAVENOUS
     Route: 042
     Dates: start: 20060503

REACTIONS (11)
  - BRADYCARDIA [None]
  - CHEST PAIN [None]
  - DIZZINESS [None]
  - GALLBLADDER DISORDER [None]
  - HEADACHE [None]
  - INFUSION RELATED REACTION [None]
  - PALPITATIONS [None]
  - PARAESTHESIA [None]
  - PRESYNCOPE [None]
  - STOMACH DISCOMFORT [None]
  - VISUAL IMPAIRMENT [None]
